FAERS Safety Report 4549251-6 (Version None)
Quarter: 2005Q1

REPORT INFORMATION
  Report Type: 
  Country: None (occurrence: None)
  Receive Date: 20050110
  Receipt Date: 20050110
  Transmission Date: 20050727
  Serious: Yes (Death)
  Sender: FDA-Public Use
  Company Number: None

PATIENT
  Age: 81 Year
  Sex: Male

DRUGS (9)
  1. BLEOMYCIN [Suspect]
     Indication: GLIOBLASTOMA
     Dosage: 15 UNITS Q WEEK FOR 2 YEARS
     Dates: start: 20040728
  2. VERAPAMIL [Concomitant]
  3. DIOVAN [Concomitant]
  4. RANITIDINE [Concomitant]
  5. LUTEIN [Concomitant]
  6. CLONIDINE [Concomitant]
  7. DEXAMETHASATE [Concomitant]
  8. VITAMIN E [Concomitant]
  9. MULTI-VITAMINS [Concomitant]

REACTIONS (2)
  - DIVERTICULITIS [None]
  - MENTAL STATUS CHANGES [None]
